FAERS Safety Report 18888545 (Version 1)
Quarter: 2021Q1

REPORT INFORMATION
  Report Type: Spontaneous
  Country: US (occurrence: US)
  Receive Date: 20210212
  Receipt Date: 20210212
  Transmission Date: 20210420
  Serious: Yes (Hospitalization, Other)
  Sender: FDA-Public Use
  Company Number: US-JNJFOC-A-NJ2020-202445

PATIENT
  Age: 42 Year
  Sex: Female
  Weight: 89.8 kg

DRUGS (11)
  1. VELETRI [Suspect]
     Active Substance: EPOPROSTENOL
     Indication: PULMONARY ARTERIAL HYPERTENSION
     Dosage: 20 NG/KG, PER MIN
     Route: 042
  2. VELETRI [Suspect]
     Active Substance: EPOPROSTENOL
     Dosage: 9 NG/KG, PER MIN
     Route: 042
  3. VELETRI [Suspect]
     Active Substance: EPOPROSTENOL
     Dosage: 4 NG/KG, PER MIN
     Route: 042
  4. OPSUMIT [Concomitant]
     Active Substance: MACITENTAN
  5. UPTRAVI [Suspect]
     Active Substance: SELEXIPAG
     Dosage: 200 MCG, BID
     Route: 048
  6. UPTRAVI [Suspect]
     Active Substance: SELEXIPAG
     Dosage: UNK
     Route: 048
  7. TRAMADOL. [Concomitant]
     Active Substance: TRAMADOL
  8. AMLODIPINE [Concomitant]
     Active Substance: AMLODIPINE BESYLATE
     Dosage: UNK
  9. UPTRAVI [Suspect]
     Active Substance: SELEXIPAG
     Indication: PULMONARY ARTERIAL HYPERTENSION
     Dosage: 800 MCG, BID
     Route: 048
     Dates: start: 20200306
  10. VELETRI [Suspect]
     Active Substance: EPOPROSTENOL
     Dosage: 10 NG/KG, PER MIN
     Route: 042
  11. VELETRI [Suspect]
     Active Substance: EPOPROSTENOL
     Dosage: 3 NG/KG, PER MIN
     Route: 042
     Dates: end: 20200323

REACTIONS (38)
  - Vomiting [Unknown]
  - Malaise [Unknown]
  - Vascular device infection [Unknown]
  - Fluid retention [Unknown]
  - Blood pressure decreased [Unknown]
  - Asthenia [Unknown]
  - Stress [Unknown]
  - Herpes zoster [Unknown]
  - Weight decreased [Unknown]
  - Bedridden [Unknown]
  - Pruritus [Unknown]
  - Pain in extremity [Unknown]
  - Hospice care [Unknown]
  - Condition aggravated [Unknown]
  - Fatigue [Unknown]
  - Decreased appetite [Unknown]
  - Hypersomnia [Unknown]
  - Chest pain [Unknown]
  - Dysphagia [Unknown]
  - Nausea [Unknown]
  - Rash pruritic [Unknown]
  - Irritability [Unknown]
  - Contusion [Unknown]
  - Thyroid hormones increased [Not Recovered/Not Resolved]
  - Blood pressure fluctuation [Unknown]
  - Catheter site discharge [Unknown]
  - Dizziness [Unknown]
  - Myalgia [Unknown]
  - Headache [Unknown]
  - Appetite disorder [Unknown]
  - Muscle spasms [Unknown]
  - Dermatitis contact [Unknown]
  - Cardiac failure [Unknown]
  - Catheter site scab [Unknown]
  - Vitamin C decreased [Unknown]
  - Device leakage [Unknown]
  - Drug withdrawal syndrome [Unknown]
  - Catheter site pruritus [Unknown]
